FAERS Safety Report 5719855-3 (Version None)
Quarter: 2008Q2

REPORT INFORMATION
  Report Type: 
  Country: None (occurrence: None)
  Receive Date: 20080428
  Receipt Date: 20080415
  Transmission Date: 20081010
  Serious: Yes (Hospitalization)
  Sender: FDA-Public Use
  Company Number: US-MERCK-0705USA05587

PATIENT
  Sex: Female

DRUGS (3)
  1. FOSAMAX [Suspect]
     Indication: OSTEOPOROSIS
     Route: 048
     Dates: start: 19960101, end: 20050101
  2. PREMARIN [Concomitant]
     Route: 065
     Dates: start: 19940101, end: 20040101
  3. [THERAPY UNSPECIFIED] [Concomitant]
     Indication: HYPERTENSION
     Route: 065
     Dates: start: 19940101

REACTIONS (18)
  - ANXIETY [None]
  - ASTHMA [None]
  - DEPRESSION [None]
  - DIABETES MELLITUS [None]
  - GINGIVAL DISORDER [None]
  - GINGIVAL PAIN [None]
  - IMPAIRED HEALING [None]
  - INFECTION [None]
  - LIMB DISCOMFORT [None]
  - LOOSE TOOTH [None]
  - LOWER LIMB FRACTURE [None]
  - OBESITY [None]
  - ORAL INFECTION [None]
  - PAIN [None]
  - PERIODONTAL DISEASE [None]
  - RHEUMATOID ARTHRITIS [None]
  - SWELLING [None]
  - UPPER LIMB FRACTURE [None]
